FAERS Safety Report 8804798 (Version 2)
Quarter: 2013Q1

REPORT INFORMATION
  Report Type: Spontaneous
  Country: FR (occurrence: FR)
  Receive Date: 20120924
  Receipt Date: 20130128
  Transmission Date: 20140127
  Serious: Yes (Hospitalization)
  Sender: FDA-Public Use
  Company Number: FR-PFIZER INC-2012232829

PATIENT
  Age: 66 Year
  Sex: Female
  Weight: 67 kg

DRUGS (5)
  1. AMLOR [Suspect]
     Indication: HYPERTENSION
     Dosage: 5 MG, 1X/DAY
     Dates: start: 20120715, end: 20120831
  2. AVLOCARDYL [Concomitant]
     Indication: TACHYCARDIA
     Dosage: 40 MG, 2X/DAY
     Route: 048
     Dates: start: 1995
  3. FLECAINE [Concomitant]
     Indication: ATRIAL FIBRILLATION
     Dosage: 150 MG, 1X/DAY
     Route: 048
     Dates: start: 20040917
  4. KARDEGIC [Concomitant]
     Indication: ATRIAL FIBRILLATION
     Dosage: 75 MG, 1X/DAY
     Dates: start: 20100415
  5. EUPANTOL [Concomitant]
     Indication: GASTROOESOPHAGEAL REFLUX DISEASE
     Dosage: 20 MG, 1X/DAY
     Route: 048
     Dates: start: 2000

REACTIONS (2)
  - Polymyalgia rheumatica [Recovered/Resolved]
  - Local swelling [Unknown]
